FAERS Safety Report 8326641-7 (Version None)
Quarter: 2012Q2

REPORT INFORMATION
  Report Type: 
  Country: None (occurrence: None)
  Receive Date: 20120501
  Receipt Date: 20120424
  Transmission Date: 20120825
  Serious: Yes (Hospitalization)
  Sender: FDA-Public Use
  Company Number: FR-PFIZER INC-2012100672

PATIENT
  Age: 70 Year
  Sex: Male

DRUGS (7)
  1. SULFASALAZINE [Suspect]
     Dosage: 1500 MG, DAILY
     Dates: start: 20120208, end: 20120214
  2. SULFASALAZINE [Suspect]
     Dosage: 1000 MG, DAILY
     Dates: start: 20120201, end: 20120207
  3. SULFASALAZINE [Suspect]
     Dosage: 500 MG, DAILY
     Route: 048
     Dates: start: 20120130, end: 20120101
  4. SULFASALAZINE [Suspect]
     Dosage: 2000 MG, DAILY
     Dates: start: 20120215, end: 20120326
  5. VALPROIC ACID [Concomitant]
     Dosage: UNK
  6. MIANSERIN [Concomitant]
     Dosage: UNK
  7. PREDNISOLONE [Concomitant]
     Dosage: 200 MG DAILY

REACTIONS (2)
  - CONFUSIONAL STATE [None]
  - DRUG RASH WITH EOSINOPHILIA AND SYSTEMIC SYMPTOMS [None]
